FAERS Safety Report 9657588 (Version 2)
Quarter: 2013Q4

REPORT INFORMATION
  Report Type: Spontaneous
  Country: US (occurrence: US)
  Receive Date: 20131030
  Receipt Date: 20131030
  Transmission Date: 20140711
  Serious: Yes (Death, Other)
  Sender: FDA-Public Use
  Company Number: US-NAPPMUNDI-USA-2008-0033444

PATIENT
  Age: 47 Year
  Sex: Female
  Weight: 113 kg

DRUGS (9)
  1. OXYCONTIN TABLETS [Suspect]
     Indication: PAIN
     Dosage: 80 MG, SEE TEXT
     Dates: end: 200603
  2. COCAINE [Suspect]
     Indication: DRUG ABUSE
  3. METHADONE [Suspect]
     Indication: PAIN
     Dates: start: 200211, end: 200603
  4. AMITRIPTYLINE [Suspect]
     Indication: PRODUCT USED FOR UNKNOWN INDICATION
  5. FLUOXETINE [Suspect]
     Indication: PRODUCT USED FOR UNKNOWN INDICATION
  6. SOMA [Concomitant]
     Dosage: 350 MG, QID
  7. MEPERIDINE HYDROCHLORIDE [Concomitant]
     Dosage: 50 MG, TID
  8. EFEXOR XR [Concomitant]
     Dosage: 150 MG, DAILY
  9. LASIX                              /00032601/ [Concomitant]
     Dosage: 40 MG, DAILY

REACTIONS (13)
  - Drug dependence [Unknown]
  - Substance abuse [Unknown]
  - Drug withdrawal syndrome [Unknown]
  - Paranoia [Unknown]
  - Delusional disorder, unspecified type [Unknown]
  - Obsessive-compulsive disorder [Unknown]
  - Anhedonia [Unknown]
  - Pain [Unknown]
  - Anxiety [Unknown]
  - Depression [Unknown]
  - Breakthrough pain [Unknown]
  - Inadequate analgesia [Unknown]
  - Accidental overdose [Fatal]
